FAERS Safety Report 5154765-4 (Version None)
Quarter: 2006Q4

REPORT INFORMATION
  Report Type: 
  Country: None (occurrence: None)
  Receive Date: 20061115
  Receipt Date: 20061115
  Transmission Date: 20070319
  Serious: Yes (Life-Threatening, Other)
  Sender: FDA-Public Use
  Company Number: None

PATIENT
  Age: 28 Year
  Sex: Female
  Weight: 42.1845 kg

DRUGS (2)
  1. YAZ [Suspect]
     Indication: CONTRACEPTION
     Dosage: 1 PILL   EVERYDAY  PO
     Route: 048
     Dates: start: 20060921, end: 20061030
  2. YAZ [Suspect]
     Indication: MENSTRUAL DISORDER
     Dosage: 1 PILL   EVERYDAY  PO
     Route: 048
     Dates: start: 20060921, end: 20061030

REACTIONS (9)
  - ABDOMINAL PAIN [None]
  - ANXIETY [None]
  - CONSTIPATION [None]
  - FATIGUE [None]
  - INSOMNIA [None]
  - MALAISE [None]
  - MENTAL DISORDER [None]
  - POLLAKIURIA [None]
  - WEIGHT DECREASED [None]
